FAERS Safety Report 12736256 (Version 2)
Quarter: 2016Q3

REPORT INFORMATION
  Report Type: Spontaneous
  Country: US (occurrence: US)
  Receive Date: 20160912
  Receipt Date: 20160920
  Transmission Date: 20161109
  Serious: No
  Sender: FDA-Public Use
  Company Number: ALCN2016US006275

PATIENT
  Age: 76 Year
  Sex: Female
  Weight: 74.83 kg

DRUGS (2)
  1. GABAPENTIN. [Concomitant]
     Active Substance: GABAPENTIN
     Indication: BACK PAIN
     Dosage: UNK
     Route: 065
  2. LATANOPROST. [Suspect]
     Active Substance: LATANOPROST
     Indication: GLAUCOMA
     Dosage: 1 GTT, QD (IN EVENING)
     Route: 047
     Dates: start: 20160809

REACTIONS (2)
  - Dysphonia [Unknown]
  - Eye irritation [Recovered/Resolved]
